FAERS Safety Report 7581683-4 (Version None)
Quarter: 2011Q2

REPORT INFORMATION
  Report Type: 
  Country: None (occurrence: None)
  Receive Date: 20110629
  Receipt Date: 20110623
  Transmission Date: 20111010
  Serious: Yes (Other)
  Sender: FDA-Public Use
  Company Number: US-GILEAD-2011-0039598

PATIENT
  Sex: Female

DRUGS (2)
  1. CIPROFLOXACIN [Concomitant]
  2. CAYSTON [Suspect]
     Indication: CYSTIC FIBROSIS
     Route: 055
     Dates: start: 20110515

REACTIONS (6)
  - ORAL DISCOMFORT [None]
  - PAIN [None]
  - OEDEMA PERIPHERAL [None]
  - JOINT SWELLING [None]
  - PHARYNGEAL OEDEMA [None]
  - RASH [None]
